FAERS Safety Report 21391785 (Version 3)
Quarter: 2023Q1

REPORT INFORMATION
  Report Type: Spontaneous
  Country: US (occurrence: US)
  Receive Date: 20220929
  Receipt Date: 20230215
  Transmission Date: 20230417
  Serious: No
  Sender: FDA-Public Use
  Company Number: US-BRISTOL-MYERS SQUIBB COMPANY-2022-108830

PATIENT
  Age: 89 Year
  Sex: Female

DRUGS (2)
  1. REVLIMID [Suspect]
     Active Substance: LENALIDOMIDE
     Indication: Plasma cell myeloma
  2. POMALYST [Suspect]
     Active Substance: POMALIDOMIDE
     Indication: Plasma cell myeloma
     Route: 048
     Dates: start: 20220916

REACTIONS (6)
  - Diarrhoea [Unknown]
  - Nausea [Unknown]
  - Epistaxis [Unknown]
  - Irritability [Unknown]
  - Fatigue [Unknown]
  - Oedema peripheral [Not Recovered/Not Resolved]
